FAERS Safety Report 12566823 (Version 3)
Quarter: 2016Q4

REPORT INFORMATION
  Report Type: Report from Study
  Country: None (occurrence: PT)
  Receive Date: 20160718
  Receipt Date: 20161007
  Transmission Date: 20170207
  Serious: Yes (Hospitalization, Other)
  Sender: FDA-Public Use
  Company Number: PT-ABBVIE-16K-130-1674252-00

PATIENT
  Age: 56 Year
  Sex: Female
  Weight: 52 kg

DRUGS (5)
  1. HUMIRA [Suspect]
     Active Substance: ADALIMUMAB
     Indication: CROHN^S DISEASE
     Dosage: LOADING DOSE 1 (WEEK 0)
     Route: 058
     Dates: start: 201505, end: 201505
  2. HUMIRA [Suspect]
     Active Substance: ADALIMUMAB
     Dosage: MAINTENANCE DOSE (WEEK 4 ONWARDS)
     Route: 058
     Dates: start: 2015, end: 201510
  3. HUMIRA [Suspect]
     Active Substance: ADALIMUMAB
     Route: 058
     Dates: start: 201605, end: 201607
  4. HUMIRA [Suspect]
     Active Substance: ADALIMUMAB
     Route: 058
     Dates: start: 201607
  5. HUMIRA [Suspect]
     Active Substance: ADALIMUMAB
     Dosage: LOADING DOSE 2 (WEEK 2)
     Route: 058
     Dates: start: 2015, end: 2015

REACTIONS (5)
  - Tuberculosis [Recovered/Resolved]
  - Drug ineffective [Recovered/Resolved]
  - Liver disorder [Recovered/Resolved]
  - Gastrointestinal infection [Recovered/Resolved]
  - Pancreas infection [Recovered/Resolved]

NARRATIVE: CASE EVENT DATE: 201505
